FAERS Safety Report 11115543 (Version 1)
Quarter: 2015Q2

REPORT INFORMATION
  Report Type: Spontaneous
  Country: None (occurrence: None)
  Receive Date: 20150514
  Receipt Date: 20150514
  Transmission Date: 20150821
  Serious: Yes (Life-Threatening)
  Sender: FDA-Public Use
  Company Number: None

PATIENT
  Age: 38 Year
  Sex: Female
  Weight: 59.42 kg

DRUGS (3)
  1. ONDANSETRON [Concomitant]
     Active Substance: ONDANSETRON
  2. ONDANSETRON [Suspect]
     Active Substance: ONDANSETRON
  3. FLUOXETINE [Concomitant]
     Active Substance: FLUOXETINE\FLUOXETINE HYDROCHLORIDE

REACTIONS (4)
  - Ventricular tachycardia [None]
  - Cardio-respiratory arrest [None]
  - Ventricular extrasystoles [None]
  - Torsade de pointes [None]

NARRATIVE: CASE EVENT DATE: 20150501
